FAERS Safety Report 13882295 (Version 8)
Quarter: 2018Q2

REPORT INFORMATION
  Report Type: Spontaneous
  Country: BR (occurrence: BR)
  Receive Date: 20170818
  Receipt Date: 20180523
  Transmission Date: 20180711
  Serious: Yes (Death, Life-Threatening, Other)
  Sender: FDA-Public Use
  Company Number: BR-JNJFOC-20160111891

PATIENT
  Age: 41 Year
  Sex: Female

DRUGS (4)
  1. REMICADE [Suspect]
     Active Substance: INFLIXIMAB
     Indication: CROHN^S DISEASE
     Route: 042
     Dates: start: 201707
  2. REMICADE [Suspect]
     Active Substance: INFLIXIMAB
     Indication: CROHN^S DISEASE
     Route: 042
     Dates: start: 20170825
  3. REMICADE [Suspect]
     Active Substance: INFLIXIMAB
     Indication: CROHN^S DISEASE
     Route: 042
     Dates: start: 2013, end: 201407
  4. REMICADE [Suspect]
     Active Substance: INFLIXIMAB
     Indication: CROHN^S DISEASE
     Route: 042
     Dates: start: 20170711

REACTIONS (18)
  - Suspected counterfeit product [Unknown]
  - Loss of consciousness [Unknown]
  - Postoperative wound complication [Fatal]
  - Intestinal resection [Unknown]
  - Surgery [Unknown]
  - Ill-defined disorder [Unknown]
  - Pain [Unknown]
  - Off label use [Unknown]
  - Drug dose omission [Unknown]
  - Incorrect drug administration rate [Unknown]
  - Drug ineffective [Unknown]
  - Infusion related reaction [Recovered/Resolved]
  - Cardiac arrest [Recovered/Resolved]
  - Inappropriate schedule of drug administration [Unknown]
  - Respiratory failure [Unknown]
  - Insomnia [Not Recovered/Not Resolved]
  - Blood pressure increased [Recovered/Resolved]
  - Dyspnoea [Unknown]

NARRATIVE: CASE EVENT DATE: 201410
